FAERS Safety Report 25996428 (Version 1)
Quarter: 2025Q4

REPORT INFORMATION
  Report Type: Spontaneous
  Country: EU (occurrence: EU)
  Receive Date: 20251104
  Receipt Date: 20251104
  Transmission Date: 20260118
  Serious: Yes (Other)
  Sender: BAUSCH AND LOMB
  Company Number: EU-BAUSCH-BH-2025-019760

PATIENT
  Age: 6 Decade
  Sex: Female

DRUGS (1)
  1. PLENVU [Suspect]
     Active Substance: ASCORBIC ACID\POLYETHYLENE GLYCOL 3350\POTASSIUM CHLORIDE\SODIUM ASCORBATE\SODIUM CHLORIDE\SODIUM SU
     Indication: Bowel preparation
     Dosage: BOTH DOSE 1 AND DOSE 2, UNKNOWN
     Route: 065

REACTIONS (4)
  - Craniofacial fracture [Unknown]
  - Fall [Unknown]
  - Epistaxis [Unknown]
  - Malaise [Unknown]
